FAERS Safety Report 24146671 (Version 3)
Quarter: 2024Q3

REPORT INFORMATION
  Report Type: Spontaneous
  Country: PT (occurrence: PT)
  Receive Date: 20240729
  Receipt Date: 20240920
  Transmission Date: 20241017
  Serious: Yes (Other)
  Sender: AUROBINDO
  Company Number: PT-AUROBINDO-AUR-APL-2024-037244

PATIENT
  Age: 66 Year
  Sex: Male

DRUGS (7)
  1. IRINOTECAN [Suspect]
     Active Substance: IRINOTECAN
     Indication: Chemotherapy
     Dosage: UNK
     Route: 065
  2. IRINOTECAN [Suspect]
     Active Substance: IRINOTECAN
     Indication: Pancreatic neoplasm
  3. OXALIPLATIN [Suspect]
     Active Substance: OXALIPLATIN
     Indication: Pancreatic carcinoma
     Dosage: UNK
     Route: 065
  4. OXALIPLATIN [Suspect]
     Active Substance: OXALIPLATIN
     Indication: Pancreatic neoplasm
  5. LEUCOVORIN CALCIUM [Suspect]
     Active Substance: LEUCOVORIN CALCIUM
     Indication: Pancreatic neoplasm
     Dosage: UNK
     Route: 065
  6. FLUOROURACIL [Suspect]
     Active Substance: FLUOROURACIL
     Indication: Pancreatic neoplasm
     Dosage: UNK
     Route: 065
  7. LEUCOVORIN CALCIUM [Suspect]
     Active Substance: LEUCOVORIN CALCIUM
     Indication: Pancreatic neoplasm
     Dosage: UNK
     Route: 065

REACTIONS (5)
  - Cardiotoxicity [Unknown]
  - Cardiac arrest [Unknown]
  - Cardio-respiratory arrest [Recovered/Resolved]
  - Ventricular fibrillation [Recovered/Resolved]
  - Off label use [Unknown]
